FAERS Safety Report 7701564-2 (Version None)
Quarter: 2011Q3

REPORT INFORMATION
  Report Type: 
  Country: None (occurrence: None)
  Receive Date: 20110822
  Receipt Date: 20110816
  Transmission Date: 20111222
  Serious: Yes (Hospitalization)
  Sender: FDA-Public Use
  Company Number: JP-BRISTOL-MYERS SQUIBB COMPANY-15862709

PATIENT
  Age: 70 Year
  Sex: Male

DRUGS (19)
  1. ORENCIA [Suspect]
     Indication: RHEUMATOID ARTHRITIS
     Dosage: ALSO 500MG FROM 3FEB,17FEB,17MAR,14APR,10MAY,7JUN11
     Route: 041
     Dates: start: 20110203
  2. SALOBEL [Concomitant]
     Indication: HYPERURICAEMIA
  3. ONEALFA [Concomitant]
     Indication: OSTEOPOROSIS
  4. LIPITOR [Concomitant]
     Indication: HYPERLIPIDAEMIA
  5. VERAPAMIL HCL [Concomitant]
     Indication: ARRHYTHMIA
  6. SULFAMETHOXAZOLE [Concomitant]
     Indication: BLOOD BETA-D-GLUCAN
  7. LASIX [Concomitant]
     Indication: OEDEMA
  8. SENNOSIDE [Concomitant]
     Indication: CONSTIPATION
  9. URSO 250 [Concomitant]
  10. VOLTAREN [Concomitant]
     Indication: RHEUMATOID ARTHRITIS
  11. TOCILIZUMAB [Concomitant]
     Dates: start: 20100911, end: 20101111
  12. MEDROL [Concomitant]
     Dosage: UNK-1MAR2011:6MG/DAY 2MAR2011-ONG:4MG/DAY
     Route: 048
  13. APIDRA [Concomitant]
     Indication: DIABETES MELLITUS
  14. CELECOXIB [Concomitant]
     Indication: RHEUMATOID ARTHRITIS
  15. KALIMATE [Concomitant]
     Indication: HYPERKALAEMIA
  16. DIGOXIN [Concomitant]
     Indication: ARRHYTHMIA
  17. WARFARIN SODIUM [Concomitant]
     Indication: ARRHYTHMIA
  18. ASPARA-CA [Concomitant]
     Indication: OSTEOPOROSIS
  19. LANTUS [Concomitant]
     Indication: DIABETES MELLITUS

REACTIONS (1)
  - SPINAL COMPRESSION FRACTURE [None]
